FAERS Safety Report 19780093 (Version 1)
Quarter: 2021Q3

REPORT INFORMATION
  Report Type: Spontaneous
  Country: IN (occurrence: IN)
  Receive Date: 20210902
  Receipt Date: 20210902
  Transmission Date: 20211014
  Serious: Yes (Hospitalization, Other)
  Sender: FDA-Public Use
  Company Number: IN-ALVOGEN-2021-ALVOGEN-117416

PATIENT
  Age: 6 Year
  Sex: Male

DRUGS (3)
  1. AMPHOTERICIN?B [Suspect]
     Active Substance: AMPHOTERICIN B
     Indication: BRAIN ABSCESS
  2. VORICONAZOLE. [Suspect]
     Active Substance: VORICONAZOLE
     Indication: BRAIN ABSCESS
  3. TERBINAFINE. [Suspect]
     Active Substance: TERBINAFINE
     Indication: BRAIN ABSCESS

REACTIONS (2)
  - Apallic syndrome [Unknown]
  - Drug ineffective [Unknown]
